FAERS Safety Report 9644525 (Version 1)
Quarter: 2013Q4

REPORT INFORMATION
  Report Type: Spontaneous
  Country: ES (occurrence: ES)
  Receive Date: 20131025
  Receipt Date: 20131025
  Transmission Date: 20140711
  Serious: Yes (Other)
  Sender: FDA-Public Use
  Company Number: ES-ASTRAZENECA-2013SE77034

PATIENT
  Age: 67 Year
  Sex: Male

DRUGS (1)
  1. CRESTOR [Suspect]
     Indication: DYSLIPIDAEMIA
     Route: 048
     Dates: start: 20111103, end: 20130821

REACTIONS (2)
  - Coordination abnormal [Recovered/Resolved]
  - Dysgraphia [Recovered/Resolved]
